FAERS Safety Report 18527279 (Version 1)
Quarter: 2020Q4

REPORT INFORMATION
  Report Type: Spontaneous
  Country: RU (occurrence: RU)
  Receive Date: 20201120
  Receipt Date: 20201120
  Transmission Date: 20210114
  Serious: Yes (Other)
  Sender: FDA-Public Use
  Company Number: RU-ROCHE-2715487

PATIENT
  Age: 73 Year
  Sex: Female

DRUGS (1)
  1. OBINUTUZUMAB. [Suspect]
     Active Substance: OBINUTUZUMAB
     Indication: LYMPHOMA TRANSFORMATION
     Route: 042

REACTIONS (2)
  - Off label use [Unknown]
  - Lymphoma transformation [Unknown]
